FAERS Safety Report 13680966 (Version 2)
Quarter: 2017Q4

REPORT INFORMATION
  Report Type: Spontaneous
  Country: US (occurrence: US)
  Receive Date: 20170623
  Receipt Date: 20171129
  Transmission Date: 20180320
  Serious: No
  Sender: FDA-Public Use
  Company Number: US-TEVA-679291USA

PATIENT
  Sex: Female

DRUGS (2)
  1. FUROSEMIDE. [Suspect]
     Active Substance: FUROSEMIDE
     Indication: CARDIAC DISORDER
  2. AMLODIPINE [Suspect]
     Active Substance: AMLODIPINE BESYLATE
     Route: 065

REACTIONS (2)
  - Mitral valve disease [Unknown]
  - Product odour abnormal [Unknown]
